FAERS Safety Report 18532632 (Version 2)
Quarter: 2020Q4

REPORT INFORMATION
  Report Type: Spontaneous
  Country: US (occurrence: US)
  Receive Date: 20201123
  Receipt Date: 20201127
  Transmission Date: 20210114
  Serious: Yes (Hospitalization)
  Sender: FDA-Public Use
  Company Number: US-BIOVITRUM-2020US6697

PATIENT
  Sex: Female
  Weight: 3 kg

DRUGS (7)
  1. SYNAGIS [Suspect]
     Active Substance: PALIVIZUMAB
     Indication: ANTIVIRAL PROPHYLAXIS
     Route: 030
     Dates: start: 201911
  2. LASIX [Concomitant]
     Active Substance: FUROSEMIDE
  3. NYSTATIN. [Concomitant]
     Active Substance: NYSTATIN
     Dosage: 100000/G CREAM(GM)
  4. VITAMIN D [Concomitant]
     Active Substance: VITAMIN D NOS
     Dosage: VITAMIN D-400
  5. ALDACTONE [Concomitant]
     Active Substance: SPIRONOLACTONE
  6. AMOXICILLIN-CLAVULANAT [Concomitant]
  7. PRILOSEC [Concomitant]
     Active Substance: OMEPRAZOLE MAGNESIUM

REACTIONS (1)
  - Gastroenteritis viral [Unknown]
